FAERS Safety Report 9844614 (Version 1)
Quarter: 2014Q1

REPORT INFORMATION
  Report Type: Spontaneous
  Country: US (occurrence: US)
  Receive Date: 20140127
  Receipt Date: 20140127
  Transmission Date: 20141002
  Serious: No
  Sender: FDA-Public Use
  Company Number: US-BAYER-2014-013212

PATIENT
  Sex: Female

DRUGS (2)
  1. BETASERON [Suspect]
  2. AMPYRA [Suspect]

REACTIONS (2)
  - Gait disturbance [None]
  - Malaise [None]
